FAERS Safety Report 9774491 (Version 1)
Quarter: 2013Q4

REPORT INFORMATION
  Report Type: Spontaneous
  Country: US (occurrence: None)
  Receive Date: 20131219
  Receipt Date: 20131219
  Transmission Date: 20140711
  Serious: Yes (Other)
  Sender: FDA-Public Use
  Company Number: None

PATIENT
  Sex: Male

DRUGS (8)
  1. IMBRUVICA [Suspect]
     Dosage: 560MG ONCE DAILY BY MOUTH
     Route: 048
     Dates: start: 20131207
  2. GEMFIBROZIL [Concomitant]
  3. FELODIPINE [Concomitant]
  4. OXYCODONE [Concomitant]
  5. LANSOPRAZOLE [Concomitant]
  6. METOPROLOL [Concomitant]
  7. XANAX [Concomitant]
  8. AMBIEN [Concomitant]

REACTIONS (4)
  - Diarrhoea [None]
  - Faeces discoloured [None]
  - Renal pain [None]
  - Urine output decreased [None]
